FAERS Safety Report 15696850 (Version 3)
Quarter: 2019Q1

REPORT INFORMATION
  Report Type: Spontaneous
  Country: US (occurrence: US)
  Receive Date: 20181206
  Receipt Date: 20190124
  Transmission Date: 20190417
  Serious: No
  Sender: FDA-Public Use
  Company Number: US-PFIZER INC-2018492797

PATIENT
  Age: 80 Year
  Sex: Female

DRUGS (2)
  1. TETRACYCLINE HCL [Suspect]
     Active Substance: TETRACYCLINE HYDROCHLORIDE
     Indication: INFECTION
     Dosage: UNK
  2. SPIRONOLACTONE. [Concomitant]
     Active Substance: SPIRONOLACTONE
     Dosage: 125 MG, 2X/DAY

REACTIONS (3)
  - Hair growth abnormal [Unknown]
  - Blood testosterone decreased [Not Recovered/Not Resolved]
  - Alopecia [Unknown]
